FAERS Safety Report 25709490 (Version 1)
Quarter: 2025Q3

REPORT INFORMATION
  Report Type: Spontaneous
  Country: CN (occurrence: CN)
  Receive Date: 20250821
  Receipt Date: 20250821
  Transmission Date: 20251020
  Serious: Yes (Hospitalization, Other)
  Sender: SANDOZ
  Company Number: CN-SANDOZ-SDZ2025CN059775

PATIENT
  Age: 71 Year
  Sex: Male
  Weight: 42 kg

DRUGS (3)
  1. VORICONAZOLE [Suspect]
     Active Substance: VORICONAZOLE
     Indication: Aspergillus infection
     Dosage: 0.2 G, Q12H
     Route: 048
     Dates: start: 20250817, end: 20250818
  2. AMINOPHYLLINE [Concomitant]
     Active Substance: AMINOPHYLLINE
     Indication: Chronic obstructive pulmonary disease
     Dosage: 250 MG, QD
     Route: 042
     Dates: start: 20250816, end: 20250816
  3. LEVOFLOXACIN LACTATE [Concomitant]
     Active Substance: LEVOFLOXACIN LACTATE
     Indication: Chronic obstructive pulmonary disease
     Dosage: 0.5 G, QD
     Route: 041
     Dates: start: 20250817, end: 20250818

REACTIONS (2)
  - Agitation [Recovered/Resolved]
  - Soliloquy [Recovered/Resolved]

NARRATIVE: CASE EVENT DATE: 20250817
